FAERS Safety Report 9341951 (Version 1)
Quarter: 2013Q2

REPORT INFORMATION
  Report Type: Report from Study
  Country: ZA (occurrence: ZA)
  Receive Date: 20130611
  Receipt Date: 20130611
  Transmission Date: 20140414
  Serious: Yes (Death)
  Sender: FDA-Public Use
  Company Number: ZA-ROCHE-1235477

PATIENT
  Sex: Female

DRUGS (6)
  1. MIRCERA [Suspect]
     Indication: NEPHROGENIC ANAEMIA
     Route: 058
     Dates: start: 20091105
  2. MIRCERA [Suspect]
     Dosage: DOSE INCREASED
     Route: 058
     Dates: start: 20110416
  3. MIRCERA [Suspect]
     Dosage: DOSE INCREASED
     Route: 058
     Dates: start: 20111019
  4. MIRCERA [Suspect]
     Dosage: DOSE REDUCED
     Route: 058
     Dates: start: 20120229
  5. MIRCERA [Suspect]
     Dosage: DOSE REDUCED
     Route: 058
     Dates: start: 20120711
  6. RECORMON [Suspect]
     Indication: NEPHROGENIC ANAEMIA
     Route: 065
     Dates: start: 200909

REACTIONS (1)
  - Death [Fatal]
